FAERS Safety Report 9509751 (Version 2)
Quarter: 2013Q3

REPORT INFORMATION
  Report Type: Spontaneous
  Country: FR (occurrence: FR)
  Receive Date: 20130909
  Receipt Date: 20130923
  Transmission Date: 20140515
  Serious: Yes (Hospitalization)
  Sender: FDA-Public Use
  Company Number: FR-B.I. PHARMACEUTICALS,INC./RIDGEFIELD-2013-FF-02254FF

PATIENT
  Age: 88 Year
  Sex: Female
  Weight: 52 kg

DRUGS (9)
  1. PRADAXA [Suspect]
     Indication: ATRIAL FIBRILLATION
     Dosage: 220 MG
     Route: 048
     Dates: start: 20121221, end: 20130225
  2. CORVASAL [Concomitant]
     Dosage: 6 MG
  3. DAFALGAN [Concomitant]
     Dosage: 1 G
  4. LASILIX [Concomitant]
     Dosage: 40MGX1.5 DAILY
  5. DIFFU K [Concomitant]
  6. GLUCOR [Concomitant]
     Dosage: 300 MG
  7. KREDEX [Concomitant]
     Dosage: 25 MG
  8. LEVOTHYROX [Concomitant]
     Dosage: 50 MCG
  9. TAHOR [Concomitant]
     Dosage: 10 MG

REACTIONS (2)
  - Gastrointestinal haemorrhage [Recovered/Resolved]
  - Red blood cell count decreased [Recovered/Resolved]
